FAERS Safety Report 13596367 (Version 1)
Quarter: 2017Q2

REPORT INFORMATION
  Report Type: Spontaneous
  Country: US (occurrence: US)
  Receive Date: 20170530
  Receipt Date: 20170530
  Transmission Date: 20170830
  Serious: Yes (Disabling)
  Sender: FDA-Public Use
  Company Number: None

PATIENT
  Age: 43 Year
  Sex: Female
  Weight: 76.5 kg

DRUGS (1)
  1. LEVAQUIN [Suspect]
     Active Substance: LEVOFLOXACIN
     Indication: SINUSITIS
     Route: 048
     Dates: start: 20170302, end: 20170308

REACTIONS (5)
  - Arthralgia [None]
  - Loss of personal independence in daily activities [None]
  - Tendon pain [None]
  - Tendon discomfort [None]
  - Quality of life decreased [None]

NARRATIVE: CASE EVENT DATE: 20170309
